FAERS Safety Report 22525811 (Version 3)
Quarter: 2023Q2

REPORT INFORMATION
  Report Type: Spontaneous
  Country: CZ (occurrence: CZ)
  Receive Date: 20230606
  Receipt Date: 20230622
  Transmission Date: 20230721
  Serious: No
  Sender: FDA-Public Use
  Company Number: CZ-MYLANLABS-2023M1018187

PATIENT
  Age: 44 Year
  Sex: Female

DRUGS (10)
  1. TOPAMAX [Suspect]
     Active Substance: TOPIRAMATE
     Indication: Migraine
     Dosage: 25 MILLIGRAM, BID
     Route: 048
     Dates: start: 2018
  2. TOPAMAX [Suspect]
     Active Substance: TOPIRAMATE
     Indication: Migraine prophylaxis
     Dosage: 50 MILLIGRAM, BID
     Route: 048
     Dates: start: 2022
  3. TOPAMAX [Suspect]
     Active Substance: TOPIRAMATE
     Indication: Migraine
  4. VENLAFAXINE [Concomitant]
     Active Substance: VENLAFAXINE HYDROCHLORIDE
     Indication: Migraine
     Dosage: 75 MILLIGRAM, QD
     Route: 065
     Dates: start: 2022
  5. VENLAFAXINE [Concomitant]
     Active Substance: VENLAFAXINE HYDROCHLORIDE
     Indication: Migraine without aura
  6. VENLAFAXINE [Concomitant]
     Active Substance: VENLAFAXINE HYDROCHLORIDE
     Indication: Migraine prophylaxis
  7. SUMATRIPTAN [Concomitant]
     Active Substance: SUMATRIPTAN
     Indication: Migraine
     Dosage: 100 MILLIGRAM
     Dates: start: 2018
  8. FREMANEZUMAB [Concomitant]
     Active Substance: FREMANEZUMAB
     Indication: Migraine
     Route: 058
  9. FREMANEZUMAB [Concomitant]
     Active Substance: FREMANEZUMAB
     Indication: Migraine prophylaxis
  10. FREMANEZUMAB [Concomitant]
     Active Substance: FREMANEZUMAB
     Indication: Migraine without aura

REACTIONS (1)
  - Drug ineffective [Unknown]

NARRATIVE: CASE EVENT DATE: 20220101
